FAERS Safety Report 9649187 (Version 2)
Quarter: 2013Q4

REPORT INFORMATION
  Report Type: Spontaneous
  Country: US (occurrence: US)
  Receive Date: 20131028
  Receipt Date: 20131028
  Transmission Date: 20140711
  Serious: No
  Sender: FDA-Public Use
  Company Number: -SAAVPROD-POMP-1001338

PATIENT
  Age: 4 Year
  Sex: Male

DRUGS (7)
  1. ALGLUCOSIDASE ALFA [Suspect]
     Indication: GLYCOGEN STORAGE DISEASE TYPE II
     Dosage: 20 MG, Q2W
     Route: 042
     Dates: start: 20070618
  2. METHOTREXATE [Suspect]
     Indication: IMMUNOSUPPRESSION
     Dosage: 15 MG/M2, UNK
     Route: 065
     Dates: start: 20090213, end: 20090716
  3. METHOTREXATE [Suspect]
     Indication: IMMUNOSUPPRESSION
     Dosage: 15 MG/M2, Q2W
     Route: 065
     Dates: start: 20100609
  4. BORTEZOMIB [Suspect]
     Indication: IMMUNOSUPPRESSION
     Dosage: 1.3 MG/M2, QUARTERLY
     Route: 065
     Dates: start: 20100609
  5. RITUXIMAB [Suspect]
     Indication: IMMUNOSUPPRESSION
     Dosage: 375 MG/M2, UNK
     Route: 065
     Dates: start: 20090213, end: 20090316
  6. RITUXIMAB [Suspect]
     Indication: IMMUNOSUPPRESSION
     Dosage: 375 MG/M2, Q4W
     Route: 065
     Dates: start: 20100609
  7. IMMUNOGLOBULIN [Suspect]
     Indication: IMMUNOSUPPRESSION

REACTIONS (1)
  - Alopecia [Not Recovered/Not Resolved]
